FAERS Safety Report 18372846 (Version 1)
Quarter: 2020Q4

REPORT INFORMATION
  Report Type: Spontaneous
  Country: AU (occurrence: AU)
  Receive Date: 20201012
  Receipt Date: 20201012
  Transmission Date: 20210114
  Serious: Yes (Other)
  Sender: FDA-Public Use
  Company Number: AU-PFIZER INC-2020386054

PATIENT
  Sex: Male

DRUGS (1)
  1. LYRICA [Suspect]
     Active Substance: PREGABALIN
     Dosage: 150 MG

REACTIONS (5)
  - Therapeutic product ineffective [Unknown]
  - Feeling drunk [Unknown]
  - Drug dependence [Unknown]
  - Suicidal ideation [Unknown]
  - Muscle spasms [Unknown]
